FAERS Safety Report 18198211 (Version 1)
Quarter: 2020Q3

REPORT INFORMATION
  Report Type: Spontaneous
  Country: CA (occurrence: CA)
  Receive Date: 20200826
  Receipt Date: 20200826
  Transmission Date: 20201103
  Serious: Yes (Other)
  Sender: FDA-Public Use
  Company Number: CA-GLAXOSMITHKLINE-CA2020AMR170960

PATIENT
  Sex: Female

DRUGS (3)
  1. ZEJULA [Suspect]
     Active Substance: NIRAPARIB
     Indication: FALLOPIAN TUBE CANCER
  2. ZEJULA [Suspect]
     Active Substance: NIRAPARIB
     Indication: OVARIAN EPITHELIAL CANCER RECURRENT
     Dosage: 100 MG, QD
     Dates: start: 20200720, end: 20200824
  3. ZEJULA [Suspect]
     Active Substance: NIRAPARIB
     Indication: MALIGNANT PERITONEAL NEOPLASM

REACTIONS (2)
  - Malignant neoplasm progression [Unknown]
  - Adverse drug reaction [Unknown]
